FAERS Safety Report 12640111 (Version 2)
Quarter: 2017Q1

REPORT INFORMATION
  Report Type: Report from Study
  Country: BE (occurrence: BE)
  Receive Date: 20160810
  Receipt Date: 20170208
  Transmission Date: 20170428
  Serious: Yes (Hospitalization)
  Sender: FDA-Public Use
  Company Number: BE-EISAI MEDICAL RESEARCH-EC-2016-019196

PATIENT
  Age: 42 Year
  Sex: Female

DRUGS (6)
  1. DEPAKINE CHRONO [Concomitant]
     Active Substance: VALPROATE SODIUM
  2. TEMESTA [Concomitant]
     Active Substance: LORAZEPAM
  3. FYCOMPA [Suspect]
     Active Substance: PERAMPANEL
     Indication: EPILEPSY
     Route: 048
     Dates: start: 20160609
  4. VIMPAT [Concomitant]
     Active Substance: LACOSAMIDE
  5. TEGRETOL [Interacting]
     Active Substance: CARBAMAZEPINE
     Indication: EPILEPSY
     Route: 048
  6. TOPAMAX [Concomitant]
     Active Substance: TOPIRAMATE

REACTIONS (2)
  - Drug interaction [Recovered/Resolved]
  - Hyponatraemia [Recovered/Resolved]

NARRATIVE: CASE EVENT DATE: 20160624
